FAERS Safety Report 6103319-1 (Version None)
Quarter: 2009Q1

REPORT INFORMATION
  Report Type: 
  Country: None (occurrence: None)
  Receive Date: 20090305
  Receipt Date: 20090224
  Transmission Date: 20090719
  Serious: Yes (Hospitalization, Other)
  Sender: FDA-Public Use
  Company Number: US-BIOGENIDEC-132169

PATIENT
  Age: 34 Year
  Sex: Female

DRUGS (4)
  1. AVONEX [Suspect]
     Indication: MULTIPLE SCLEROSIS
     Route: 030
     Dates: start: 19960101, end: 19980316
  2. AVONEX [Suspect]
     Route: 030
     Dates: start: 19990601, end: 19990101
  3. PROZAC [Concomitant]
     Route: 048
     Dates: start: 19990318, end: 19990318
  4. DITROPAN [Concomitant]
     Route: 048
     Dates: start: 19990318, end: 19990318

REACTIONS (1)
  - FALSE LABOUR [None]
